FAERS Safety Report 5765851-X (Version None)
Quarter: 2008Q2

REPORT INFORMATION
  Report Type: 
  Country: None (occurrence: None)
  Receive Date: 20080611
  Receipt Date: 20080530
  Transmission Date: 20081010
  Serious: Yes (Other)
  Sender: FDA-Public Use
  Company Number: US-PFIZER INC-2008003332

PATIENT
  Sex: Female
  Weight: 55.454 kg

DRUGS (9)
  1. CHANTIX [Suspect]
     Indication: SMOKING CESSATION THERAPY
     Route: 048
  2. VALIUM [Concomitant]
  3. PREMARIN [Concomitant]
  4. SOMA [Concomitant]
  5. ALBUTEROL [Concomitant]
  6. AMBIEN [Concomitant]
     Route: 048
  7. CEFTIN [Concomitant]
     Route: 048
  8. ROCEPHIN [Concomitant]
  9. MUCINEX [Concomitant]

REACTIONS (4)
  - NIGHTMARE [None]
  - PHYSICAL ASSAULT [None]
  - SOMNAMBULISM [None]
  - TREMOR [None]
